FAERS Safety Report 20627222 (Version 4)
Quarter: 2023Q1

REPORT INFORMATION
  Report Type: Report from Study
  Country: ES (occurrence: ES)
  Receive Date: 20220323
  Receipt Date: 20230209
  Transmission Date: 20230418
  Serious: Yes (Other)
  Sender: FDA-Public Use
  Company Number: ES-GLAXOSMITHKLINE-ES2022EME051058

PATIENT

DRUGS (1)
  1. BELANTAMAB MAFODOTIN [Suspect]
     Active Substance: BELANTAMAB MAFODOTIN
     Indication: Plasma cell myeloma
     Dosage: 100 MG
     Dates: start: 202201

REACTIONS (14)
  - Blindness [Not Recovered/Not Resolved]
  - Vision blurred [Recovering/Resolving]
  - Photosensitivity reaction [Not Recovered/Not Resolved]
  - Foreign body sensation in eyes [Not Recovered/Not Resolved]
  - Ocular cyst [Not Recovered/Not Resolved]
  - Influenza [Not Recovered/Not Resolved]
  - Conjunctivitis [Not Recovered/Not Resolved]
  - Lacrimation increased [Recovered/Resolved]
  - Pyrexia [Recovered/Resolved]
  - Secretion discharge [Recovered/Resolved]
  - Cough [Not Recovered/Not Resolved]
  - Nasal congestion [Unknown]
  - Productive cough [Unknown]
  - Inappropriate schedule of product administration [Not Recovered/Not Resolved]

NARRATIVE: CASE EVENT DATE: 20220101
